FAERS Safety Report 7202234-X (Version None)
Quarter: 2010Q4

REPORT INFORMATION
  Report Type: 
  Country: None (occurrence: None)
  Receive Date: 20101229
  Receipt Date: 20101216
  Transmission Date: 20110411
  Serious: Yes (Other)
  Sender: FDA-Public Use
  Company Number: SE-AMGEN-SWESP2010005421

PATIENT

DRUGS (7)
  1. ENBREL [Suspect]
     Indication: PRODUCT USED FOR UNKNOWN INDICATION
     Dosage: 25 MG, 2X/WEEK
     Dates: start: 19990101, end: 20050101
  2. ENBREL [Suspect]
     Indication: RHEUMATOID ARTHRITIS
     Dosage: 50 MG, WEEKLY
     Dates: start: 20050101
  3. ENBREL [Suspect]
     Dosage: 25 MG, 2X/WEEK
     Route: 058
     Dates: start: 19991201, end: 20050101
  4. METHOTREXATE [Concomitant]
  5. METHOTREXATE [Concomitant]
     Dosage: 15 MG, WEEKLY
     Dates: start: 19970101
  6. CORTISONE [Concomitant]
  7. CALCICHEW-D3 [Concomitant]
     Dosage: 500 MG, 2X/DAY
     Dates: start: 20080101

REACTIONS (6)
  - ARTHRITIS [None]
  - DRUG INEFFECTIVE [None]
  - JOINT ARTHROPLASTY [None]
  - JOINT DESTRUCTION [None]
  - JOINT SWELLING [None]
  - RHEUMATOID ARTHRITIS [None]
